FAERS Safety Report 8953570 (Version 1)
Quarter: 2012Q4

REPORT INFORMATION
  Report Type: 
  Country: US (occurrence: US)
  Receive Date: 20121206
  Receipt Date: 20121206
  Transmission Date: 20130627
  Serious: No
  Sender: FDA-Public Use
  Company Number: US-PFIZER INC-2012303451

PATIENT
  Age: 53 Year
  Sex: Female

DRUGS (1)
  1. MS CONTIN [Suspect]
     Dosage: UNK
     Route: 048
     Dates: start: 2012

REACTIONS (4)
  - Oral mucosal blistering [Unknown]
  - Migraine [Unknown]
  - Urticaria [Unknown]
  - Pruritus [Unknown]
